FAERS Safety Report 18270669 (Version 12)
Quarter: 2021Q2

REPORT INFORMATION
  Report Type: Spontaneous
  Country: US (occurrence: US)
  Receive Date: 20200915
  Receipt Date: 20210604
  Transmission Date: 20210717
  Serious: No
  Sender: FDA-Public Use
  Company Number: US-DSJP-DSU-2020-125796

PATIENT
  Sex: Female

DRUGS (2)
  1. TURALIO [Suspect]
     Active Substance: PEXIDARTINIB HYDROCHLORIDE
     Indication: SYNOVITIS
     Dosage: 200 MG, BID
     Route: 048
     Dates: start: 20200828
  2. TURALIO [Suspect]
     Active Substance: PEXIDARTINIB HYDROCHLORIDE
     Dosage: 200 MG, BID
     Route: 048
     Dates: start: 20200828

REACTIONS (13)
  - Laboratory test abnormal [Unknown]
  - Product dose omission issue [Recovered/Resolved]
  - Constipation [Recovered/Resolved]
  - Hair colour changes [Not Recovered/Not Resolved]
  - Arthritis [Recovered/Resolved]
  - Skin discolouration [Unknown]
  - Arthralgia [Recovering/Resolving]
  - Sinus headache [Unknown]
  - Wrong dose [Recovered/Resolved]
  - Joint dislocation [Unknown]
  - Urinary retention [Recovered/Resolved]
  - Erythema [Unknown]
  - Alopecia [Unknown]

NARRATIVE: CASE EVENT DATE: 2020
